FAERS Safety Report 13402492 (Version 2)
Quarter: 2017Q2

REPORT INFORMATION
  Report Type: Report from Study
  Country: US (occurrence: US)
  Receive Date: 20170404
  Receipt Date: 20170421
  Transmission Date: 20170830
  Serious: Yes (Hospitalization)
  Sender: FDA-Public Use
  Company Number: US-TAIHO ONCOLOGY INC-EU-2016-03310

PATIENT
  Age: 44 Year
  Sex: Female
  Weight: 45.4 kg

DRUGS (16)
  1. MIRALAX [Concomitant]
     Active Substance: POLYETHYLENE GLYCOL 3350
  2. NORTRIPTYLINE [Concomitant]
     Active Substance: NORTRIPTYLINE
     Dosage: 1 OR 2 AT BEDTIME
  3. PHENAZOPYRIDINE. [Concomitant]
     Active Substance: PHENAZOPYRIDINE
     Dosage: AFTER MEALS
  4. LONSURF [Suspect]
     Active Substance: TIPIRACIL HYDROCHLORIDE\TRIFLURIDINE
     Indication: APPENDIX CANCER
     Route: 048
     Dates: start: 201611, end: 20170306
  5. ONDANSETRON [Concomitant]
     Active Substance: ONDANSETRON
     Dosage: WITH METHADONE
  6. TYLENOL [Concomitant]
     Active Substance: ACETAMINOPHEN
     Indication: PAIN
  7. DEXAMETHASONE. [Concomitant]
     Active Substance: DEXAMETHASONE
     Indication: FATIGUE
  8. ZINC SULFATE [Concomitant]
     Active Substance: ZINC SULFATE\ZINC SULFATE ANHYDROUS
  9. NYSTATIN. [Concomitant]
     Active Substance: NYSTATIN
     Dosage: SWISH AND SWALLOW
  10. LONSURF [Suspect]
     Active Substance: TIPIRACIL HYDROCHLORIDE\TRIFLURIDINE
     Indication: APPENDIX CANCER
     Dosage: 30 MG AM, 45 MG PM
     Route: 048
     Dates: start: 20170306, end: 20170310
  11. DEXAMETHASONE. [Concomitant]
     Active Substance: DEXAMETHASONE
     Indication: PAIN
  12. METHADONE [Concomitant]
     Active Substance: METHADONE HYDROCHLORIDE
     Indication: PAIN
  13. DEXAMETHASONE. [Concomitant]
     Active Substance: DEXAMETHASONE
     Indication: DECREASED APPETITE
  14. FAMOTIDINE. [Concomitant]
     Active Substance: FAMOTIDINE
     Dosage: WITH MEALS
  15. OXYCODONE [Concomitant]
     Active Substance: OXYCODONE
     Indication: PAIN
     Dosage: 1/2 TAB TO 1 TABLET AS NEEDED
  16. OXYCODONE [Concomitant]
     Active Substance: OXYCODONE
     Indication: DYSPNOEA

REACTIONS (10)
  - Weight decreased [Unknown]
  - Drug ineffective [Unknown]
  - Hypotension [Unknown]
  - Red blood cell count decreased [Unknown]
  - Constipation [Recovered/Resolved]
  - White blood cell count decreased [Unknown]
  - Urinary tract infection [Unknown]
  - Intestinal obstruction [Recovering/Resolving]
  - Vaginal haemorrhage [Not Recovered/Not Resolved]
  - Fatigue [Unknown]

NARRATIVE: CASE EVENT DATE: 201612
